FAERS Safety Report 8421856-1 (Version None)
Quarter: 2012Q2

REPORT INFORMATION
  Report Type: 
  Country: None (occurrence: None)
  Receive Date: 20120608
  Receipt Date: 20120601
  Transmission Date: 20120825
  Serious: No
  Sender: FDA-Public Use
  Company Number: US-PFIZER INC-2012133215

PATIENT
  Sex: Female

DRUGS (12)
  1. VANCOMYCIN HYCHLORIDE [Suspect]
     Dosage: UNK
  2. ALENDRONATE SODIUM [Suspect]
     Dosage: UNK
  3. COMPAZINE [Suspect]
     Dosage: UNK
  4. PROCHLORPERAZINE MALEATE [Suspect]
     Dosage: UNK
  5. PROPOXYPHENE NAPSYLATE [Suspect]
     Dosage: UNK
  6. DOXYCYCLINE HYCLATE [Suspect]
     Dosage: UNK
  7. CODEINE [Suspect]
     Dosage: UNK
  8. CITALOPRAM HYDROBROMIDE [Suspect]
     Dosage: UNK
  9. HYDROCODONE BITARTRATE [Suspect]
     Dosage: UNK
  10. PROCHLORPERAZINE EDISYLATE [Suspect]
     Dosage: UNK
  11. TETANUS TOXOID [Suspect]
     Dosage: UNK
  12. ACETAMINOPHEN [Suspect]
     Dosage: UNK

REACTIONS (1)
  - DRUG HYPERSENSITIVITY [None]
